FAERS Safety Report 12304526 (Version 5)
Quarter: 2021Q4

REPORT INFORMATION
  Report Type: Other
  Country: AT (occurrence: None)
  Receive Date: 20160426
  Receipt Date: 20211105
  Transmission Date: 20220303
  Serious: Yes (Death)
  Sender: FDA-Public Use
  Company Number: AT-ROCHE-1747808

PATIENT
  Sex: Female

DRUGS (2)
  1. CAPECITABINE [Suspect]
     Active Substance: CAPECITABINE
     Indication: Breast cancer metastatic
     Dosage: ON DAY 1 AND DAY 14
     Route: 048
  2. BENDAMUSTINE [Suspect]
     Active Substance: BENDAMUSTINE
     Indication: Breast cancer metastatic
     Dosage: ON DAY 1 AND DAY 8 OF A 3-WEEK CYCLE
     Route: 042

REACTIONS (1)
  - Restrictive cardiomyopathy [Fatal]
